FAERS Safety Report 24790827 (Version 4)
Quarter: 2025Q3

REPORT INFORMATION
  Report Type: Report from Study
  Country: CN (occurrence: CN)
  Receive Date: 20241230
  Receipt Date: 20250729
  Transmission Date: 20251020
  Serious: Yes (Hospitalization, Other)
  Sender: EISAI
  Company Number: CN-Eisai-EC-2024-181567

PATIENT
  Age: 64 Year
  Sex: Female
  Weight: 57 kg

DRUGS (7)
  1. ERIBULIN [Suspect]
     Active Substance: ERIBULIN
     Indication: Breast cancer metastatic
     Dates: start: 20240830, end: 20241119
  2. ERIBULIN [Suspect]
     Active Substance: ERIBULIN
     Dates: start: 20241224, end: 20250616
  3. POLYSACCHARIDE COMPLEX [Concomitant]
     Indication: Anaemia
     Dosage: 1 CAPSULE
     Dates: start: 20241114
  4. MOMETASONE FUROATE [Concomitant]
     Active Substance: MOMETASONE FUROATE
     Indication: Sinusitis
     Dates: start: 20241030
  5. METHYLCOBALAMIN [Concomitant]
     Active Substance: METHYLCOBALAMIN
     Indication: Peripheral sensory neuropathy
     Dosage: 1 TABLET
     Dates: start: 20241116
  6. CALCIUM CARBONATE AND VITAMIN D3 CHEWABLE [Concomitant]
     Indication: Prophylaxis
     Dosage: 1 TABLET
     Dates: start: 202411
  7. VITAMIN B1 [Concomitant]
     Active Substance: THIAMINE HYDROCHLORIDE
     Dosage: 2 TABLETS
     Dates: start: 20241224

REACTIONS (2)
  - White blood cell count decreased [Recovered/Resolved]
  - Neutrophil count decreased [Recovered/Resolved]

NARRATIVE: CASE EVENT DATE: 20241213
